FAERS Safety Report 14518473 (Version 2)
Quarter: 2018Q1

REPORT INFORMATION
  Report Type: Spontaneous
  Country: CN (occurrence: CN)
  Receive Date: 20180212
  Receipt Date: 20180326
  Transmission Date: 20180509
  Serious: Yes (Other)
  Sender: FDA-Public Use
  Company Number: CN-PFIZER INC-2018045867

PATIENT
  Age: 8 Year
  Sex: Female

DRUGS (1)
  1. METHOTREXATE. [Suspect]
     Active Substance: METHOTREXATE
     Indication: ACUTE LYMPHOCYTIC LEUKAEMIA
     Dosage: UNK (HD-MTX 3 G/M2, 1/10 OF THE TOTAL DOSE WAS INFUSED WITHIN 0.5 HOURS REMAINING DOSE OVER)
     Route: 042

REACTIONS (5)
  - Ileus paralytic [Recovered/Resolved]
  - Acute kidney injury [Recovered/Resolved]
  - Stomatitis [Recovered/Resolved]
  - Pulmonary oedema [Recovered/Resolved]
  - Drug level increased [Recovered/Resolved]
